FAERS Safety Report 19230550 (Version 3)
Quarter: 2021Q3

REPORT INFORMATION
  Report Type: Report from Study
  Country: US (occurrence: US)
  Receive Date: 20210507
  Receipt Date: 20210824
  Transmission Date: 20211014
  Serious: No
  Sender: FDA-Public Use
  Company Number: NVSC2021US096003

PATIENT
  Age: 77 Year
  Sex: Male

DRUGS (1)
  1. ENTRESTO [Suspect]
     Active Substance: SACUBITRIL\VALSARTAN
     Indication: PRODUCT USED FOR UNKNOWN INDICATION
     Dosage: 50 MG, BID (24/26 MG)
     Route: 065
     Dates: start: 202002

REACTIONS (10)
  - Cold sweat [Recovered/Resolved]
  - Product dose omission issue [Recovered/Resolved]
  - Hyperhidrosis [Recovered/Resolved]
  - Throat clearing [Not Recovered/Not Resolved]
  - Vision blurred [Not Recovered/Not Resolved]
  - Body temperature increased [Recovered/Resolved]
  - Disorientation [Recovered/Resolved]
  - Dizziness [Recovered/Resolved]
  - Feeling abnormal [Recovered/Resolved]
  - Weight increased [Unknown]

NARRATIVE: CASE EVENT DATE: 202002
